FAERS Safety Report 8022190-4 (Version None)
Quarter: 2012Q1

REPORT INFORMATION
  Report Type: 
  Country: None (occurrence: None)
  Receive Date: 20120104
  Receipt Date: 20111222
  Transmission Date: 20120608
  Serious: Yes (Life-Threatening, Hospitalization)
  Sender: FDA-Public Use
  Company Number: JP-UCBSA-046504

PATIENT
  Age: 31 Year
  Sex: Male

DRUGS (1)
  1. KEPPRA [Suspect]
     Route: 048
     Dates: start: 20111108, end: 20111121

REACTIONS (3)
  - WHITE BLOOD CELL COUNT DECREASED [None]
  - HEPATIC FUNCTION ABNORMAL [None]
  - DRUG ERUPTION [None]
